FAERS Safety Report 10252125 (Version 2)
Quarter: 2014Q2

REPORT INFORMATION
  Report Type: Report from Study
  Country: US (occurrence: US)
  Receive Date: 20140623
  Receipt Date: 20140623
  Transmission Date: 20141212
  Serious: Yes (Hospitalization)
  Sender: FDA-Public Use
  Company Number: PHEH2014US010438

PATIENT
  Age: 47 Year
  Sex: Female
  Weight: 60.4 kg

DRUGS (14)
  1. GILENYA [Suspect]
     Indication: RELAPSING-REMITTING MULTIPLE SCLEROSIS
     Dosage: 0.5 MG, QD
     Route: 048
     Dates: start: 20140405, end: 20140520
  2. PRILOSEC [Concomitant]
  3. LEVOTHYROXINE [Concomitant]
  4. WELLBUTRIN [Concomitant]
  5. VIIBRYD [Concomitant]
  6. ABILIFY [Concomitant]
  7. CLONAZEPAM [Concomitant]
  8. TIZANIDINE [Concomitant]
  9. BACLOFEN [Concomitant]
  10. VESICARE [Concomitant]
  11. AMBIEN [Concomitant]
     Route: 048
  12. NUVIGIL [Concomitant]
     Route: 048
  13. LORAZEPAM [Concomitant]
     Route: 048
  14. NORCO [Concomitant]
     Route: 048

REACTIONS (8)
  - Chest pain [Recovered/Resolved]
  - Chest discomfort [Recovered/Resolved]
  - Chills [Unknown]
  - Gait disturbance [Unknown]
  - Toothache [Recovered/Resolved]
  - Fatigue [Unknown]
  - Asthenia [Unknown]
  - Dizziness [Unknown]
